FAERS Safety Report 8980020 (Version 2)
Quarter: 2013Q1

REPORT INFORMATION
  Report Type: Report from Study
  Country: IE (occurrence: IE)
  Receive Date: 20121221
  Receipt Date: 20130118
  Transmission Date: 20140127
  Serious: Yes (Hospitalization)
  Sender: FDA-Public Use
  Company Number: PHHY2012IE116556

PATIENT
  Age: 62 Year
  Sex: Female

DRUGS (3)
  1. ZOLEDRONATE [Suspect]
     Dosage: 4 MG, UNK
     Route: 042
     Dates: start: 20120328
  2. TAXOL [Concomitant]
     Indication: NEOPLASM PROPHYLAXIS
     Dosage: 70 MG/M2, UNK
     Dates: start: 20120425
  3. HERCEPTIN [Concomitant]
     Indication: NEOPLASM PROPHYLAXIS
     Dosage: 4 MG/KG, UNK
     Dates: start: 20120425

REACTIONS (2)
  - Pneumonia [Recovered/Resolved]
  - Neutropenic sepsis [Recovered/Resolved]
